FAERS Safety Report 10107414 (Version 1)
Quarter: 2014Q2

REPORT INFORMATION
  Report Type: Spontaneous
  Country: PH (occurrence: PH)
  Receive Date: 20140424
  Receipt Date: 20140424
  Transmission Date: 20141212
  Serious: Yes (Hospitalization, Other)
  Sender: FDA-Public Use
  Company Number: PHHY2014PH049542

PATIENT
  Age: 87 Year
  Sex: Female

DRUGS (5)
  1. EXELON PATCH [Suspect]
     Indication: DEMENTIA
     Dosage: 4.6 MG/24 HOURS (PATCH 5 CM2 DAILY)
     Route: 062
  2. EXELON PATCH [Suspect]
     Dosage: 9.5 MG/24 HOURS (PATCH 10 CM2 DAILY)
     Route: 062
     Dates: end: 201312
  3. EXELON PATCH [Suspect]
     Dosage: 4.6 MG/24 HOURS (PATCH 5 CM2 DAILY)
     Route: 062
     Dates: start: 201402, end: 201402
  4. LEVODOPA/CARBIDOPA [Concomitant]
     Dosage: UNK UKN, UNK
  5. METHIMAZOLE [Concomitant]
     Dosage: UNK UKN, UNK

REACTIONS (4)
  - Ileus paralytic [Recovered/Resolved]
  - Generalised erythema [Recovered/Resolved]
  - Pruritus generalised [Recovered/Resolved]
  - Rash generalised [Recovered/Resolved]
